FAERS Safety Report 24561549 (Version 1)
Quarter: 2024Q4

REPORT INFORMATION
  Report Type: Other
  Country: NL (occurrence: NL)
  Receive Date: 20241029
  Receipt Date: 20241029
  Transmission Date: 20250114
  Serious: Yes (Other)
  Sender: B BRAUN
  Company Number: NL-B.Braun Medical Inc.-2164034

PATIENT
  Age: 17 Year
  Sex: Male

DRUGS (10)
  1. ACETAMINOPHEN [Suspect]
     Active Substance: ACETAMINOPHEN
  2. SUFENTANIL [Suspect]
     Active Substance: SUFENTANIL
  3. LACTATED RINGERS SOLUTION [Concomitant]
     Active Substance: CALCIUM CHLORIDE\POTASSIUM CHLORIDE\SODIUM CHLORIDE\SODIUM LACTATE
  4. TRANEXAMIC ACID [Suspect]
     Active Substance: TRANEXAMIC ACID
  5. ONDANSETRON [Suspect]
     Active Substance: ONDANSETRON
  6. DEXAMETHASONE [Suspect]
     Active Substance: DEXAMETHASONE
  7. EPHEDRINE [Suspect]
     Active Substance: EPHEDRINE
  8. CEFAZOLIN SODIUM [Suspect]
     Active Substance: CEFAZOLIN SODIUM
  9. PROPOFOL [Suspect]
     Active Substance: PROPOFOL
  10. MORPHINE [Suspect]
     Active Substance: MORPHINE

REACTIONS (1)
  - Language disorder [Recovered/Resolved]
